FAERS Safety Report 8288227-2 (Version None)
Quarter: 2012Q2

REPORT INFORMATION
  Report Type: 
  Country: None (occurrence: None)
  Receive Date: 20120416
  Receipt Date: 20120403
  Transmission Date: 20120825
  Serious: Yes (Life-Threatening, Hospitalization, Disabling)
  Sender: FDA-Public Use
  Company Number: FR-ROCHE-1056612

PATIENT
  Sex: Female
  Weight: 70 kg

DRUGS (1)
  1. VEMURAFENIB [Suspect]
     Indication: PRODUCT USED FOR UNKNOWN INDICATION
     Route: 048
     Dates: start: 20120306, end: 20120319

REACTIONS (3)
  - RENAL FAILURE ACUTE [None]
  - THROMBOCYTOPENIA [None]
  - GENERAL PHYSICAL HEALTH DETERIORATION [None]
